FAERS Safety Report 9537526 (Version 3)
Quarter: 2013Q4

REPORT INFORMATION
  Report Type: Spontaneous
  Country: IT (occurrence: IT)
  Receive Date: 20130919
  Receipt Date: 20131125
  Transmission Date: 20140711
  Serious: Yes (Hospitalization)
  Sender: FDA-Public Use
  Company Number: PHHY2013IT103766

PATIENT
  Age: 35 Year
  Sex: Male

DRUGS (3)
  1. TOLEP [Suspect]
     Indication: SUICIDE ATTEMPT
     Dosage: NINE UNITS OF 300 MG
     Route: 048
     Dates: start: 20130819, end: 20130819
  2. PAROXETINE [Suspect]
     Indication: SUICIDE ATTEMPT
     Dosage: SEVEN UNITS OF 20MG
     Route: 048
     Dates: start: 20130819, end: 20130819
  3. COCAINE [Concomitant]
     Dosage: 1 G, UNK
     Dates: start: 20130819, end: 20130819

REACTIONS (5)
  - Drug abuse [Recovered/Resolved]
  - Cold sweat [Recovered/Resolved]
  - Hyperhidrosis [Recovered/Resolved]
  - Dyspnoea [Recovered/Resolved]
  - Loss of consciousness [Recovered/Resolved]
